FAERS Safety Report 5521885-1 (Version None)
Quarter: 2007Q4

REPORT INFORMATION
  Report Type: 
  Country: None (occurrence: None)
  Receive Date: 20071120
  Receipt Date: 20071114
  Transmission Date: 20080405
  Serious: Yes (Other)
  Sender: FDA-Public Use
  Company Number: US-GENENTECH-246847

PATIENT
  Sex: Female
  Weight: 55.329 kg

DRUGS (1)
  1. HERCEPTIN [Suspect]
     Indication: BREAST CANCER
     Dosage: UNK, Q3W
     Route: 042
     Dates: start: 20070131, end: 20070813

REACTIONS (1)
  - VENTRICULAR EXTRASYSTOLES [None]
